FAERS Safety Report 18078491 (Version 1)
Quarter: 2020Q3

REPORT INFORMATION
  Report Type: Spontaneous
  Country: US (occurrence: US)
  Receive Date: 20200727
  Receipt Date: 20200727
  Transmission Date: 20201103
  Serious: No
  Sender: FDA-Public Use
  Company Number: US-AMGEN-USASL2020114809

PATIENT
  Age: 70 Year
  Sex: Female

DRUGS (3)
  1. LINZESS [Concomitant]
     Active Substance: LINACLOTIDE
  2. ANORO [Concomitant]
     Active Substance: UMECLIDINIUM BROMIDE\VILANTEROL TRIFENATATE
  3. PROLIA [Suspect]
     Active Substance: DENOSUMAB
     Indication: PRODUCT USED FOR UNKNOWN INDICATION
     Dosage: UNK UNK, Q6MO
     Route: 065
     Dates: start: 2019

REACTIONS (9)
  - Asthenia [Unknown]
  - Arthralgia [Unknown]
  - Back pain [Unknown]
  - Skin exfoliation [Unknown]
  - Pruritus [Unknown]
  - Pain in extremity [Not Recovered/Not Resolved]
  - Sleep disorder due to a general medical condition [Recovering/Resolving]
  - Myalgia [Unknown]
  - Eye pain [Unknown]

NARRATIVE: CASE EVENT DATE: 2020
